FAERS Safety Report 6668939-4 (Version None)
Quarter: 2010Q2

REPORT INFORMATION
  Report Type: 
  Country: None (occurrence: None)
  Receive Date: 20100402
  Receipt Date: 20100323
  Transmission Date: 20101027
  Serious: Yes (Hospitalization)
  Sender: FDA-Public Use
  Company Number: DSA_42569_2010

PATIENT
  Sex: Male

DRUGS (17)
  1. XENAZINE [Suspect]
     Indication: PERONEAL MUSCULAR ATROPHY
     Dosage: 50 MG BID ORAL, 25 MG ORAL, 50 MG BID ORAL
     Route: 048
     Dates: start: 20090427, end: 20090101
  2. XENAZINE [Suspect]
     Indication: TOURETTE'S DISORDER
     Dosage: 50 MG BID ORAL, 25 MG ORAL, 50 MG BID ORAL
     Route: 048
     Dates: start: 20090427, end: 20090101
  3. XENAZINE [Suspect]
     Indication: PERONEAL MUSCULAR ATROPHY
     Dosage: 50 MG BID ORAL, 25 MG ORAL, 50 MG BID ORAL
     Route: 048
     Dates: end: 20100218
  4. XENAZINE [Suspect]
     Indication: TOURETTE'S DISORDER
     Dosage: 50 MG BID ORAL, 25 MG ORAL, 50 MG BID ORAL
     Route: 048
     Dates: end: 20100218
  5. XENAZINE [Suspect]
     Indication: PERONEAL MUSCULAR ATROPHY
     Dosage: 50 MG BID ORAL, 25 MG ORAL, 50 MG BID ORAL
     Route: 048
     Dates: start: 20090101
  6. XENAZINE [Suspect]
     Indication: TOURETTE'S DISORDER
     Dosage: 50 MG BID ORAL, 25 MG ORAL, 50 MG BID ORAL
     Route: 048
     Dates: start: 20090101
  7. ATENOLOL [Concomitant]
  8. ENALAPRIL MALEATE [Concomitant]
  9. PROMETHAZINE [Concomitant]
  10. PROTONIX [Concomitant]
  11. ALBUTEROL [Concomitant]
  12. COMBIVENT [Concomitant]
  13. HYOSCYAMINE [Concomitant]
  14. NAPROXEN [Concomitant]
  15. ABILIFY [Concomitant]
  16. LEXAPRO [Concomitant]
  17. SEROQUEL [Concomitant]

REACTIONS (15)
  - AFFECT LABILITY [None]
  - AGGRESSION [None]
  - ALANINE AMINOTRANSFERASE DECREASED [None]
  - ANGER [None]
  - ANXIETY [None]
  - BLOOD CHLORIDE DECREASED [None]
  - BLOOD GLUCOSE INCREASED [None]
  - BLOOD UREA INCREASED [None]
  - BLOOD UREA NITROGEN/CREATININE RATIO INCREASED [None]
  - COGNITIVE DISORDER [None]
  - HEART RATE INCREASED [None]
  - MEMORY IMPAIRMENT [None]
  - PERSONALITY CHANGE [None]
  - PLATELET COUNT DECREASED [None]
  - POOR QUALITY SLEEP [None]
